FAERS Safety Report 17257544 (Version 1)
Quarter: 2020Q1

REPORT INFORMATION
  Report Type: Spontaneous
  Country: US (occurrence: US)
  Receive Date: 20200109
  Receipt Date: 20200109
  Transmission Date: 20200409
  Serious: Yes (Other)
  Sender: FDA-Public Use
  Company Number: None

PATIENT
  Age: 57 Year
  Sex: Female
  Weight: 66.6 kg

DRUGS (6)
  1. OSELTAMIVIR PHOSPHATE CAPSULES, USP [Suspect]
     Active Substance: OSELTAMIVIR PHOSPHATE
     Indication: INFLUENZA
     Dosage: ?          QUANTITY:1 CAPSULE(S);?
     Route: 048
     Dates: start: 20200107, end: 20200108
  2. HYDROCHLOROTHIAZIDE. [Concomitant]
     Active Substance: HYDROCHLOROTHIAZIDE
  3. LEVOTHYROXINE. [Concomitant]
     Active Substance: LEVOTHYROXINE
  4. ADVIL [Concomitant]
     Active Substance: IBUPROFEN
  5. LOSARTAN. [Concomitant]
     Active Substance: LOSARTAN
  6. CENTRUM [Concomitant]
     Active Substance: VITAMINS

REACTIONS (6)
  - Muscle spasms [None]
  - Myalgia [None]
  - Vomiting [None]
  - Nausea [None]
  - Depression [None]
  - Crying [None]

NARRATIVE: CASE EVENT DATE: 20200108
